FAERS Safety Report 23163526 (Version 2)
Quarter: 2023Q4

REPORT INFORMATION
  Report Type: Spontaneous
  Country: BT (occurrence: BT)
  Receive Date: 20231109
  Receipt Date: 20231125
  Transmission Date: 20240110
  Serious: Yes (Other)
  Sender: FDA-Public Use
  Company Number: BT-MACLEODS PHARMACEUTICALS US LTD-MAC2023044188

PATIENT

DRUGS (4)
  1. TRIAMCINOLONE ACETONIDE [Suspect]
     Active Substance: TRIAMCINOLONE ACETONIDE
     Indication: Oral submucosal fibrosis
     Dosage: 1 MILLILITER, Q.W. (INJECTION)
     Route: 026
  2. VITAMINS [Concomitant]
     Active Substance: VITAMINS
     Indication: Oral submucosal fibrosis
     Dosage: UNK
     Route: 048
  3. VITAMIN C [Concomitant]
     Active Substance: ASCORBIC ACID
     Indication: Oral submucosal fibrosis
     Dosage: 250 MILLIGRAM, BID
     Route: 048
  4. VITAMIN B COMPLEX [Concomitant]
     Active Substance: CYANOCOBALAMIN\DEXPANTHENOL\NIACINAMIDE\PYRIDOXINE HYDROCHLORIDE\RIBOFLAVIN 5^-PHOSPHATE SODIUM\THIA
     Indication: Oral submucosal fibrosis
     Dosage: 1 DOSAGE FORM, BID
     Route: 065

REACTIONS (2)
  - Pseudo Cushing^s syndrome [Recovered/Resolved]
  - Oligomenorrhoea [Unknown]
